FAERS Safety Report 9275589 (Version 2)
Quarter: 2013Q2

REPORT INFORMATION
  Report Type: Spontaneous
  Country: IL (occurrence: None)
  Receive Date: 20130430
  Receipt Date: 20130430
  Transmission Date: 20140414
  Serious: Yes (Hospitalization)
  Sender: FDA-Public Use
  Company Number: 2013-1785

PATIENT
  Sex: Female

DRUGS (1)
  1. SOMATULINE AUTOGEL [Suspect]
     Indication: PRODUCT USED FOR UNKNOWN INDICATION
     Dosage: 120 MG (120 MG, 1 IN 28 D), SUBCUTANEOUS
     Route: 058
     Dates: start: 20121206

REACTIONS (1)
  - Blood potassium decreased [None]
